FAERS Safety Report 21171539 (Version 1)
Quarter: 2022Q3

REPORT INFORMATION
  Report Type: Spontaneous
  Country: ES (occurrence: ES)
  Receive Date: 20220804
  Receipt Date: 20220804
  Transmission Date: 20221027
  Serious: Yes (Hospitalization, Other)
  Sender: FDA-Public Use
  Company Number: None

PATIENT
  Age: 62 Year
  Sex: Female
  Weight: 49.2 kg

DRUGS (3)
  1. FUROSEMIDE [Interacting]
     Active Substance: FUROSEMIDE
     Indication: Hepatic failure
     Dosage: 1-0-0, 40 MILLIGRAM, QD
     Route: 048
     Dates: start: 20220217, end: 20220308
  2. SPIRONOLACTONE [Interacting]
     Active Substance: SPIRONOLACTONE
     Indication: Cirrhosis alcoholic
     Dosage: 50 MILLIGRAM, QD
     Route: 048
     Dates: start: 20211215, end: 20220217
  3. SPIRONOLACTONE [Interacting]
     Active Substance: SPIRONOLACTONE
     Dosage: 3-0-0 (PREVIOUSLY 2-0-0, DOSE INCREASED ON 17/02/2022)
     Route: 048
     Dates: start: 20220217, end: 20220308

REACTIONS (1)
  - Acute kidney injury [Recovered/Resolved]

NARRATIVE: CASE EVENT DATE: 20220308
